FAERS Safety Report 4341920-6 (Version None)
Quarter: 2004Q2

REPORT INFORMATION
  Report Type: 
  Country: None (occurrence: None)
  Receive Date: 20040413
  Receipt Date: 20040330
  Transmission Date: 20050107
  Serious: Yes (Death)
  Sender: FDA-Public Use
  Company Number: NSADSS2003005881

PATIENT
  Age: 77 Year
  Sex: Male

DRUGS (3)
  1. DURAGESIC [Suspect]
     Indication: CANCER PAIN
     Dosage: TRANSDERMAL
     Route: 062
     Dates: start: 20021201
  2. ANTIHYPERTENSIVES (ANTIHYPERTENSIVES) [Concomitant]
  3. TYLOX (OXYCODONE/ACETAMINOPHEN) UNSPECIFIED [Concomitant]

REACTIONS (1)
  - PROSTATE CANCER METASTATIC [None]
